FAERS Safety Report 6470148-9 (Version None)
Quarter: 2009Q4

REPORT INFORMATION
  Report Type: 
  Country: None (occurrence: None)
  Receive Date: 20091203
  Receipt Date: 20071226
  Transmission Date: 20100525
  Serious: Yes (Hospitalization)
  Sender: FDA-Public Use
  Company Number: JP-ELI_LILLY_AND_COMPANY-JP200711005214

PATIENT
  Sex: Male
  Weight: 51.7 kg

DRUGS (14)
  1. PEMETREXED [Suspect]
     Indication: PLEURAL MESOTHELIOMA MALIGNANT
     Dosage: 500 MG/M2, OTHER
     Route: 042
     Dates: start: 20070531, end: 20070531
  2. PANVITAN [Concomitant]
     Indication: PROPHYLAXIS
     Dosage: 1 G, DAILY (1/D)
     Route: 048
     Dates: start: 20070516, end: 20070706
  3. METHYCOBAL [Concomitant]
     Indication: PROPHYLAXIS
     Dosage: 1 MG, OTHER
     Route: 030
     Dates: start: 20070516, end: 20070516
  4. DEPAS [Concomitant]
     Indication: NEUROSIS
     Dosage: 1.5 MG, DAILY (1/D)
     Route: 048
  5. DIOVAN [Concomitant]
     Indication: HYPERTENSION
     Dosage: 80 MG, DAILY (1/D)
     Route: 048
  6. ASPIRIN [Concomitant]
     Indication: CEREBROVASCULAR DISORDER
     Dosage: 100 MG, DAILY (1/D)
     Route: 048
  7. ADALAT CR /THA/ [Concomitant]
     Indication: HYPERTENSION
     Dosage: 40 MG, DAILY (1/D)
     Route: 048
  8. GASTER D /JPN/ [Concomitant]
     Indication: GASTRIC ULCER
     Dosage: 20 MG, DAILY (1/D)
     Route: 048
  9. AVISHOT [Concomitant]
     Indication: BENIGN PROSTATIC HYPERPLASIA
     Dosage: 50 MG, DAILY (1/D)
     Route: 048
  10. CARDENALIN [Concomitant]
     Indication: HYPERTENSION
     Dosage: 1 MG, UNK
     Route: 048
  11. LENDORMIN [Concomitant]
     Indication: INSOMNIA
     Dosage: 0.25 MG, DAILY (1/D)
     Route: 048
  12. DECADRON [Concomitant]
     Indication: PROPHYLAXIS
     Dosage: 20 MG, DAILY (1/D)
     Route: 042
     Dates: start: 20070531, end: 20070531
  13. KYTRIL [Concomitant]
     Indication: PROPHYLAXIS
     Dosage: 3 MG, DAILY (1/D)
     Route: 042
     Dates: start: 20070531, end: 20070531
  14. MIYA-BM [Concomitant]
     Indication: DIARRHOEA
     Dosage: 60 MG, DAILY (1/D)
     Route: 048
     Dates: start: 20070605, end: 20070608

REACTIONS (2)
  - HEPATIC FUNCTION ABNORMAL [None]
  - PYREXIA [None]
